FAERS Safety Report 16452082 (Version 1)
Quarter: 2019Q2

REPORT INFORMATION
  Report Type: Spontaneous
  Country: US (occurrence: US)
  Receive Date: 20190619
  Receipt Date: 20190619
  Transmission Date: 20190711
  Serious: No
  Sender: FDA-Public Use
  Company Number: US-ROCHE-2193801

PATIENT
  Age: 5 Year
  Sex: Female

DRUGS (9)
  1. CANAKINUMAB. [Concomitant]
     Active Substance: CANAKINUMAB
  2. ETANERCEPT [Concomitant]
     Active Substance: ETANERCEPT
  3. INFLIXIMAB [Concomitant]
     Active Substance: INFLIXIMAB
  4. USTEKINUMAB [Concomitant]
     Active Substance: USTEKINUMAB
  5. METHOTREXATE. [Concomitant]
     Active Substance: METHOTREXATE
  6. TOCILIZUMAB. [Suspect]
     Active Substance: TOCILIZUMAB
     Indication: CHRONIC RECURRENT MULTIFOCAL OSTEOMYELITIS
     Route: 065
  7. PAMIDRONATE [Concomitant]
     Active Substance: PAMIDRONATE DISODIUM
  8. ADALIMUMAB [Concomitant]
     Active Substance: ADALIMUMAB
  9. GOLIMUMAB [Concomitant]
     Active Substance: GOLIMUMAB
     Route: 065

REACTIONS (1)
  - Chronic recurrent multifocal osteomyelitis [Recovered/Resolved]
